FAERS Safety Report 20061640 (Version 1)
Quarter: 2021Q4

REPORT INFORMATION
  Report Type: Spontaneous
  Country: PL (occurrence: PL)
  Receive Date: 20211112
  Receipt Date: 20211112
  Transmission Date: 20220303
  Serious: Yes (Hospitalization)
  Sender: FDA-Public Use
  Company Number: None

PATIENT
  Age: 17 Year
  Sex: Male

DRUGS (2)
  1. IBUPROFEN [Suspect]
     Active Substance: IBUPROFEN
     Indication: Pharyngitis
     Dosage: 200 MG
     Route: 048
     Dates: start: 20210919, end: 20210919
  2. CEFUROXIME [Suspect]
     Active Substance: CEFUROXIME
     Indication: Pharyngitis
     Dosage: 1000 MG, QD
     Route: 048
     Dates: start: 20210914, end: 20210919

REACTIONS (5)
  - Dyspnoea [Recovered/Resolved]
  - Urticaria [Recovered/Resolved]
  - Face oedema [Recovered/Resolved]
  - Nausea [Recovered/Resolved]
  - Erythema [Recovered/Resolved]

NARRATIVE: CASE EVENT DATE: 20210919
